FAERS Safety Report 13453130 (Version 1)
Quarter: 2017Q2

REPORT INFORMATION
  Report Type: Report from Study
  Country: US (occurrence: US)
  Receive Date: 20170418
  Receipt Date: 20170418
  Transmission Date: 20170830
  Serious: Yes (Hospitalization)
  Sender: FDA-Public Use
  Company Number: US-AMGEN-USASL2017057145

PATIENT
  Age: 66 Year
  Sex: Female

DRUGS (1)
  1. REPATHA [Suspect]
     Active Substance: EVOLOCUMAB
     Indication: BLOOD CHOLESTEROL INCREASED
     Dosage: 140 MG, Q2WK
     Route: 065
     Dates: start: 201602

REACTIONS (11)
  - Concussion [Unknown]
  - Crying [Unknown]
  - Pain in jaw [Not Recovered/Not Resolved]
  - Haemorrhage [Unknown]
  - Dysphonia [Unknown]
  - Loss of consciousness [Unknown]
  - Moaning [Unknown]
  - Lip injury [Unknown]
  - Confusional state [Unknown]
  - Chills [Unknown]
  - Haematoma [Unknown]
